FAERS Safety Report 7479058-1 (Version None)
Quarter: 2011Q2

REPORT INFORMATION
  Report Type: 
  Country: None (occurrence: None)
  Receive Date: 20110504
  Receipt Date: 20110418
  Transmission Date: 20111010
  Serious: Yes (Hospitalization)
  Sender: FDA-Public Use
  Company Number: AE11-0033

PATIENT
  Age: 54 Year
  Sex: Male
  Weight: 85.7298 kg

DRUGS (1)
  1. MORPHINE SULFATE [Suspect]
     Indication: INVESTIGATION
     Dosage: 200 MG/DAY, ORAL
     Route: 048
     Dates: start: 20110409

REACTIONS (4)
  - BLISTER [None]
  - PAIN IN EXTREMITY [None]
  - INFECTION [None]
  - ARTHRALGIA [None]
